FAERS Safety Report 16387948 (Version 1)
Quarter: 2019Q2

REPORT INFORMATION
  Report Type: Spontaneous
  Country: US (occurrence: US)
  Receive Date: 20190426
  Receipt Date: 20190426
  Transmission Date: 20190711
  Serious: Yes (Other)
  Sender: FDA-Public Use
  Company Number: None

PATIENT
  Age: 71 Year
  Sex: Female

DRUGS (19)
  1. SILDENAFIL. [Concomitant]
     Active Substance: SILDENAFIL
  2. FLUOXETINE [Concomitant]
     Active Substance: FLUOXETINE HYDROCHLORIDE
  3. HYDROXYCHLOROQUINE [Concomitant]
     Active Substance: HYDROXYCHLOROQUINE
  4. ATORVASTATIN [Concomitant]
     Active Substance: ATORVASTATIN
  5. ASPIRIN. [Concomitant]
     Active Substance: ASPIRIN
  6. AVAIR [Concomitant]
  7. DISKUS [Concomitant]
  8. ALPRAZOLAM. [Concomitant]
     Active Substance: ALPRAZOLAM
  9. NORCO [Concomitant]
     Active Substance: ACETAMINOPHEN\HYDROCODONE BITARTRATE
  10. ALBUTEROL HFA [Concomitant]
     Active Substance: ALBUTEROL SULFATE
  11. TRAZODONE [Concomitant]
     Active Substance: TRAZODONE HYDROCHLORIDE
  12. AMLODIPINE [Concomitant]
     Active Substance: AMLODIPINE BESYLATE
  13. OMEPRAZOLE. [Concomitant]
     Active Substance: OMEPRAZOLE
  14. FOSAMAX [Concomitant]
     Active Substance: ALENDRONATE SODIUM
  15. BIOTIN [Concomitant]
     Active Substance: BIOTIN
  16. FOLIC ACID. [Concomitant]
     Active Substance: FOLIC ACID
  17. ARAVA [Concomitant]
     Active Substance: LEFLUNOMIDE
  18. DULOXETINE. [Concomitant]
     Active Substance: DULOXETINE
  19. OPSUMIT [Suspect]
     Active Substance: MACITENTAN
     Indication: PULMONARY ARTERIAL HYPERTENSION
     Dosage: 10-14D
     Route: 048

REACTIONS (2)
  - Peripheral swelling [None]
  - Drug intolerance [None]

NARRATIVE: CASE EVENT DATE: 20190426
